FAERS Safety Report 14313703 (Version 5)
Quarter: 2018Q1

REPORT INFORMATION
  Report Type: Spontaneous
  Country: US (occurrence: US)
  Receive Date: 20171221
  Receipt Date: 20180215
  Transmission Date: 20180509
  Serious: Yes (Other)
  Sender: FDA-Public Use
  Company Number: US-PFIZER INC-2017541390

PATIENT

DRUGS (4)
  1. LIDOCAINE HCL [Suspect]
     Active Substance: LIDOCAINE HYDROCHLORIDE
     Dosage: 10 ML MULTIDOSE VIAL
     Route: 014
     Dates: start: 20171129
  2. DEPO-MEDROL [Suspect]
     Active Substance: METHYLPREDNISOLONE ACETATE
     Dosage: 5 ML, UNK
     Route: 014
     Dates: start: 20171129
  3. MARCAINE [Suspect]
     Active Substance: BUPIVACAINE HYDROCHLORIDE
     Dosage: 10 ML MULTIDOSE VIAL
     Route: 014
     Dates: start: 20171129
  4. BUPIVACAINE. [Suspect]
     Active Substance: BUPIVACAINE
     Dosage: 10 ML MULTIDOSE VIAL
     Route: 014
     Dates: start: 20171129

REACTIONS (4)
  - Staphylococcal infection [Unknown]
  - Injection site joint infection [Unknown]
  - Product quality issue [Unknown]
  - Product use issue [Unknown]

NARRATIVE: CASE EVENT DATE: 20171129
